FAERS Safety Report 9214421 (Version 1)
Quarter: 2013Q2

REPORT INFORMATION
  Report Type: Spontaneous
  Country: US (occurrence: US)
  Receive Date: 20130405
  Receipt Date: 20130405
  Transmission Date: 20140414
  Serious: No
  Sender: FDA-Public Use
  Company Number: US-009507513-1304USA001904

PATIENT
  Age: 21 Year
  Sex: Female

DRUGS (1)
  1. NUVARING [Suspect]
     Indication: CONTRACEPTION
     Dosage: 1 RING IN VAGINA EVERY 3 WEEKS, WITH ONE WEEK FREE OF RING
     Route: 067
     Dates: start: 20120502

REACTIONS (2)
  - Vulvovaginal pain [Unknown]
  - Product quality issue [Unknown]
